FAERS Safety Report 8736605 (Version 2)
Quarter: 2012Q4

REPORT INFORMATION
  Report Type: Report from Study
  Country: DE (occurrence: DE)
  Receive Date: 20120822
  Receipt Date: 20120830
  Transmission Date: 20130627
  Serious: Yes (Hospitalization)
  Sender: FDA-Public Use
  Company Number: DE-GLAXOSMITHKLINE-B0822639A

PATIENT
  Age: 37 Year
  Sex: Female
  Weight: 75 kg

DRUGS (5)
  1. LAPATINIB [Suspect]
     Indication: BREAST CANCER
     Dosage: 750MG Per day
     Route: 048
     Dates: start: 20120426
  2. PACLITAXEL [Suspect]
     Indication: BREAST CANCER
     Dosage: 117MG Weekly
     Route: 042
     Dates: start: 20120426
  3. DOXORUBICIN [Suspect]
     Indication: BREAST CANCER
     Dosage: 29MG Weekly
     Route: 042
     Dates: start: 20120426
  4. CARBOPLATIN [Suspect]
     Indication: BREAST CANCER
     Dosage: 300MG Weekly
     Route: 042
     Dates: start: 20120426
  5. TRASTUZUMAB [Suspect]
     Indication: BREAST CANCER
     Dosage: 456MG Every 3 weeks
     Route: 042
     Dates: start: 20120426

REACTIONS (1)
  - Pyrexia [Recovered/Resolved]
